FAERS Safety Report 24662030 (Version 1)
Quarter: 2024Q4

REPORT INFORMATION
  Report Type: Spontaneous
  Country: CA (occurrence: CA)
  Receive Date: 20241125
  Receipt Date: 20241125
  Transmission Date: 20250114
  Serious: Yes (Other)
  Sender: ABBVIE
  Company Number: CA-ABBVIE-6013660

PATIENT
  Age: 49 Year
  Sex: Male

DRUGS (2)
  1. RINVOQ [Suspect]
     Active Substance: UPADACITINIB
     Indication: Product used for unknown indication
     Route: 048
  2. HYRIMOZ [Suspect]
     Active Substance: ADALIMUMAB-ADAZ
     Indication: Psoriatic arthropathy
     Route: 058

REACTIONS (10)
  - Ocular hyperaemia [Unknown]
  - Abdominal pain [Unknown]
  - Psoriatic arthropathy [Unknown]
  - Gait inability [Unknown]
  - Accidental exposure to product [Unknown]
  - Psoriasis [Unknown]
  - Visual impairment [Unknown]
  - Pyrexia [Unknown]
  - Contusion [Unknown]
  - Drug ineffective [Unknown]
